FAERS Safety Report 9835572 (Version 2)
Quarter: 2014Q2

REPORT INFORMATION
  Report Type: Spontaneous
  Country: US (occurrence: US)
  Receive Date: 20140122
  Receipt Date: 20140527
  Transmission Date: 20141212
  Serious: Yes (Hospitalization)
  Sender: FDA-Public Use
  Company Number: US-B.I. PHARMACEUTICALS,INC./RIDGEFIELD-2014-BI-02690BP

PATIENT
  Sex: Female
  Weight: 113.4 kg

DRUGS (1)
  1. PRADAXA [Suspect]
     Indication: ATRIAL FIBRILLATION
     Route: 065
     Dates: start: 201104, end: 201108

REACTIONS (4)
  - Gastrointestinal haemorrhage [Unknown]
  - Telangiectasia [Unknown]
  - Thrombosis [Unknown]
  - Gastric polyps [Unknown]
